FAERS Safety Report 11605049 (Version 1)
Quarter: 2015Q3

REPORT INFORMATION
  Report Type: Spontaneous
  Country: US (occurrence: US)
  Receive Date: 20150916
  Receipt Date: 20150916
  Transmission Date: 20151125
  Serious: No
  Sender: FDA-Public Use
  Company Number: US-ELI_LILLY_AND_COMPANY-US201404004955

PATIENT
  Sex: Male

DRUGS (4)
  1. HUMALOG [Suspect]
     Active Substance: INSULIN LISPRO
     Dosage: 30 U, DAILY
     Route: 065
  2. LANTUS [Concomitant]
     Active Substance: INSULIN GLARGINE
     Indication: PRODUCT USED FOR UNKNOWN INDICATION
     Route: 065
  3. HUMALOG [Suspect]
     Active Substance: INSULIN LISPRO
     Indication: TYPE 1 DIABETES MELLITUS
     Dosage: 30 U, DAILY
     Route: 065
     Dates: start: 2009
  4. HUMALOG [Suspect]
     Active Substance: INSULIN LISPRO
     Dosage: 30 U DAILY
     Route: 065

REACTIONS (5)
  - Incorrect dose administered [Unknown]
  - Glycosylated haemoglobin increased [Unknown]
  - Blood glucose increased [Unknown]
  - Wrong technique in product usage process [Unknown]
  - Visual acuity reduced [Not Recovered/Not Resolved]
